FAERS Safety Report 18621668 (Version 1)
Quarter: 2020Q4

REPORT INFORMATION
  Report Type: Spontaneous
  Country: BE (occurrence: BE)
  Receive Date: 20201216
  Receipt Date: 20201216
  Transmission Date: 20210114
  Serious: Yes (Other)
  Sender: FDA-Public Use
  Company Number: BE-ROCHE-2733214

PATIENT
  Sex: Female

DRUGS (5)
  1. RUPATALL [Concomitant]
     Dosage: UNK (2, 3X)
     Route: 065
  2. XOLAIR [Suspect]
     Active Substance: OMALIZUMAB
     Indication: CHRONIC SPONTANEOUS URTICARIA
     Route: 065
     Dates: start: 20200801
  3. RUPATALL [Concomitant]
     Indication: CHRONIC SPONTANEOUS URTICARIA
     Dosage: UNK (2)
     Route: 065
  4. LEVOCETIRIZINE [Concomitant]
     Active Substance: LEVOCETIRIZINE
     Indication: PRODUCT USED FOR UNKNOWN INDICATION
     Dosage: 1 DF, QD
     Route: 065
  5. XOLAIR [Suspect]
     Active Substance: OMALIZUMAB
     Route: 065
     Dates: end: 20201102

REACTIONS (4)
  - Swelling face [Unknown]
  - Angioedema [Recovered/Resolved]
  - Drug ineffective [Unknown]
  - Chronic spontaneous urticaria [Recovered/Resolved]

NARRATIVE: CASE EVENT DATE: 20201102
